FAERS Safety Report 8804391 (Version 1)
Quarter: 2012Q4

REPORT INFORMATION
  Report Type: 
  Country: US (occurrence: US)
  Receive Date: 20120924
  Receipt Date: 20120924
  Transmission Date: 20130627
  Serious: Yes (Life-Threatening)
  Sender: FDA-Public Use
  Company Number: US-B.I. PHARMACEUTICALS,INC./RIDGEFIELD-2012-BP-23149BP

PATIENT
  Age: 77 Year
  Sex: Female

DRUGS (4)
  1. PRADAXA [Suspect]
     Dosage: 75 mg
     Route: 048
  2. DIGOXIN [Concomitant]
  3. DIABETIC THERAPIES [Concomitant]
     Indication: DIABETES MELLITUS
  4. CELEXA [Concomitant]

REACTIONS (1)
  - Haemorrhage intracranial [Recovered/Resolved]
